FAERS Safety Report 25442014 (Version 1)
Quarter: 2025Q2

REPORT INFORMATION
  Report Type: Spontaneous
  Country: JP (occurrence: JP)
  Receive Date: 20250616
  Receipt Date: 20250616
  Transmission Date: 20250716
  Serious: Yes (Death, Hospitalization, Other)
  Sender: OTSUKA
  Company Number: JP-MMM-Otsuka-0JRNSQHX

PATIENT
  Age: 60 Year
  Sex: Female
  Weight: 64.1 kg

DRUGS (3)
  1. BUSULFEX [Suspect]
     Active Substance: BUSULFAN
     Indication: Bone marrow conditioning regimen
     Dosage: 200 MG X 4 TIMES/DAY
     Route: 042
     Dates: start: 20241128, end: 20241201
  2. THIOTEPA [Suspect]
     Active Substance: THIOTEPA
     Indication: Bone marrow conditioning regimen
     Dosage: 300 MG X 2 TIMES/DAY
     Route: 042
     Dates: start: 20241202, end: 20241203
  3. METFORMIN HYDROCHLORIDE [Concomitant]
     Active Substance: METFORMIN HYDROCHLORIDE
     Indication: Product used for unknown indication
     Route: 048
     Dates: end: 20250218

REACTIONS (6)
  - Hepatic vein occlusion [Fatal]
  - Venoocclusive liver disease [Fatal]
  - Pneumonia [Unknown]
  - Zinc deficiency [Unknown]
  - Thirst [Unknown]
  - Overdose [Unknown]

NARRATIVE: CASE EVENT DATE: 20241128
